FAERS Safety Report 14526731 (Version 1)
Quarter: 2018Q1

REPORT INFORMATION
  Report Type: Spontaneous
  Country: GB (occurrence: GB)
  Receive Date: 20180213
  Receipt Date: 20180213
  Transmission Date: 20180509
  Serious: Yes (Hospitalization)
  Sender: FDA-Public Use
  Company Number: GB-ALSI-201800112

PATIENT
  Age: 7 Decade
  Sex: Male

DRUGS (1)
  1. MEDICAL GASEOUS OXYGEN OXYGEN [Suspect]
     Active Substance: OXYGEN
     Indication: PRODUCT USED FOR UNKNOWN INDICATION
     Route: 050

REACTIONS (2)
  - Intentional product misuse [Unknown]
  - Thermal burn [Unknown]
